FAERS Safety Report 7571866-1 (Version None)
Quarter: 2011Q2

REPORT INFORMATION
  Report Type: 
  Country: None (occurrence: None)
  Receive Date: 20110624
  Receipt Date: 20100511
  Transmission Date: 20111010
  Serious: No
  Sender: FDA-Public Use
  Company Number: A0859127A

PATIENT
  Age: 33 Year
  Sex: Female

DRUGS (4)
  1. PULMICORT [Concomitant]
  2. VERAMYST [Suspect]
     Dosage: 2PUFF PER DAY
     Route: 045
     Dates: start: 20100414
  3. LEVOXYL [Concomitant]
  4. AMOXIL [Concomitant]

REACTIONS (2)
  - DRUG EXPOSURE DURING PREGNANCY [None]
  - EPISTAXIS [None]
